FAERS Safety Report 8289223-1 (Version None)
Quarter: 2012Q2

REPORT INFORMATION
  Report Type: 
  Country: None (occurrence: None)
  Receive Date: 20120417
  Receipt Date: 20120410
  Transmission Date: 20120825
  Serious: Yes (Other)
  Sender: FDA-Public Use
  Company Number: PHHY2012JP023432

PATIENT
  Age: 74 Year
  Sex: Male

DRUGS (1)
  1. RASILEZ [Suspect]
     Indication: HYPERTENSION
     Dosage: UNK
     Route: 048
     Dates: start: 20101115, end: 20121115

REACTIONS (3)
  - NEPHROPATHY [None]
  - DISEASE PROGRESSION [None]
  - BLOOD POTASSIUM INCREASED [None]
